FAERS Safety Report 7940590-5 (Version None)
Quarter: 2011Q4

REPORT INFORMATION
  Report Type: 
  Country: None (occurrence: None)
  Receive Date: 20111114
  Receipt Date: 20101130
  Transmission Date: 20120403
  Serious: Yes (Hospitalization)
  Sender: FDA-Public Use
  Company Number: 2010S1001746

PATIENT
  Age: 63 Year
  Sex: Male

DRUGS (12)
  1. NAFCILLIN [Concomitant]
  2. RAMIPRIL [Concomitant]
  3. CLOPIDOGREL [Concomitant]
  4. CORTICOSTEROIDS [Concomitant]
  5. CEPHALEXIN [Concomitant]
  6. VANCOMYCIN [Concomitant]
  7. ASPIRIN [Concomitant]
  8. SIMVASTATIN [Concomitant]
  9. GENTAMICIN [Concomitant]
  10. PIPERACILLIN [Concomitant]
  11. CUBICIN [Suspect]
     Indication: STAPHYLOCOCCAL INFECTION
  12. CUBICIN [Suspect]
     Indication: ARTHRITIS BACTERIAL

REACTIONS (2)
  - EOSINOPHILIA [None]
  - LETHARGY [None]
